FAERS Safety Report 9455369 (Version 4)
Quarter: 2013Q4

REPORT INFORMATION
  Report Type: Report from Study
  Country: NZ (occurrence: NZ)
  Receive Date: 20130813
  Receipt Date: 20131011
  Transmission Date: 20140711
  Serious: Yes (Other)
  Sender: FDA-Public Use
  Company Number: PHHY2013NZ085689

PATIENT
  Age: 56 Year
  Sex: Male

DRUGS (19)
  1. TEGRETOL [Suspect]
     Dosage: UNK UKN, UNK
  2. CLOZARIL [Interacting]
     Indication: SCHIZOPHRENIA
     Dosage: 25 MG, UNK
     Dates: start: 20110706
  3. CLOZARIL [Interacting]
     Dosage: 150 MG, UNK
  4. VALPROATE SODIUM [Interacting]
     Dosage: 800 MG, BID
     Dates: end: 201107
  5. VALPROATE SODIUM [Interacting]
     Dosage: 1000 MG, BID
  6. VALPROATE SODIUM [Interacting]
     Dosage: 800 MG, UNK
  7. VALPROATE SODIUM [Interacting]
     Dosage: 500 MG, BID
  8. RISPERIDONE [Interacting]
     Indication: PSYCHOTIC DISORDER
     Dosage: UNK UKN, UNK
  9. QUETIAPINE [Interacting]
     Indication: PSYCHOTIC DISORDER
     Dosage: 12.5 MG, BID
  10. QUETIAPINE [Interacting]
     Dosage: 25 MG, BID
  11. ARIPIPRAZOLE [Interacting]
     Indication: PSYCHOTIC DISORDER
     Dosage: 10 MG, MANE
  12. OLANZAPINE [Suspect]
     Indication: PSYCHOTIC DISORDER
     Dosage: UNK UKN, UNK
  13. ZIPRASIDONE [Suspect]
     Indication: PSYCHOTIC DISORDER
     Dosage: UNK UKN, UNK
  14. AMISULPRIDE [Concomitant]
     Dosage: 100 MG, UNK
  15. AMISULPRIDE [Concomitant]
     Dosage: 200 MG, NOCTE
  16. DONEPEZIL [Concomitant]
     Dosage: UNK UKN, UNK
  17. CARBAMAZEPINE [Concomitant]
     Dosage: UNK UKN, UNK
  18. ZOPICLONE [Concomitant]
     Dosage: 7.5 MG, UNK
  19. LORAZEPAM [Concomitant]
     Dosage: 1 MG, BID

REACTIONS (22)
  - Cognitive disorder [Unknown]
  - Post-traumatic amnestic disorder [Unknown]
  - Memory impairment [Unknown]
  - Mental impairment [Recovering/Resolving]
  - Psychotic disorder [Unknown]
  - Suicidal ideation [Unknown]
  - Abnormal behaviour [Unknown]
  - Anxiety [Unknown]
  - Paranoia [Unknown]
  - Derailment [Unknown]
  - Poverty of thought content [Unknown]
  - Mood swings [Unknown]
  - Dysphoria [Unknown]
  - Slow speech [Not Recovered/Not Resolved]
  - Agitation [Unknown]
  - Fear [Unknown]
  - Viral infection [Unknown]
  - Thrombocytopenia [Unknown]
  - Neutropenia [Recovered/Resolved]
  - White blood cell count decreased [Recovered/Resolved]
  - Extrapyramidal disorder [Unknown]
  - Akathisia [Unknown]
